FAERS Safety Report 4389843-0 (Version None)
Quarter: 2004Q2

REPORT INFORMATION
  Report Type: 
  Country: None (occurrence: None)
  Receive Date: 20040628
  Receipt Date: 20040616
  Transmission Date: 20050107
  Serious: No
  Sender: FDA-Public Use
  Company Number: BDI-006229

PATIENT
  Age: 60 Year
  Sex: Male

DRUGS (1)
  1. CHOLETEC (TECHNETIUM TC 99M MEBROFENIN), BRACCO [Suspect]
     Indication: SCAN
     Dosage: 5 MC ONCE IV
     Route: 042
     Dates: start: 20040616, end: 20040616

REACTIONS (6)
  - CONFUSIONAL STATE [None]
  - CONVULSION [None]
  - FEELING ABNORMAL [None]
  - HYPERHIDROSIS [None]
  - TREMOR [None]
  - URINARY INCONTINENCE [None]
